FAERS Safety Report 9232075 (Version 1)
Quarter: 2013Q2

REPORT INFORMATION
  Report Type: Spontaneous
  Country: US (occurrence: US)
  Receive Date: 20130415
  Receipt Date: 20130415
  Transmission Date: 20140414
  Serious: No
  Sender: FDA-Public Use
  Company Number: US-PFIZER INC-2013115640

PATIENT
  Age: 66 Year
  Sex: Female

DRUGS (2)
  1. SOMAVERT [Suspect]
     Dosage: UNK
     Route: 058
  2. SOMAVERT [Suspect]
     Dosage: 30 MG, 1X/DAY
     Route: 058

REACTIONS (1)
  - Injection site pain [Unknown]
